FAERS Safety Report 10744924 (Version 2)
Quarter: 2015Q1

REPORT INFORMATION
  Report Type: Spontaneous
  Country: US (occurrence: US)
  Receive Date: 20150128
  Receipt Date: 20150226
  Transmission Date: 20150721
  Serious: Yes (Other)
  Sender: FDA-Public Use
  Company Number: US-PFIZER INC-2015029783

PATIENT
  Age: 56 Year
  Sex: Female
  Weight: 87 kg

DRUGS (1)
  1. NEURONTIN [Suspect]
     Active Substance: GABAPENTIN
     Indication: NERVE INJURY
     Dosage: 600 MG, 3X/DAY
     Route: 048

REACTIONS (1)
  - Laryngeal polyp [Not Recovered/Not Resolved]
